FAERS Safety Report 19904046 (Version 2)
Quarter: 2021Q4

REPORT INFORMATION
  Report Type: Spontaneous
  Country: US (occurrence: US)
  Receive Date: 20211001
  Receipt Date: 20211011
  Transmission Date: 20220303
  Serious: Yes (Other)
  Sender: FDA-Public Use
  Company Number: US-PFIZER INC-202101288007

PATIENT
  Sex: Male

DRUGS (1)
  1. CARDURA XL [Suspect]
     Active Substance: DOXAZOSIN MESYLATE
     Dosage: 4 MG, DAILY (4MG EVERY DAY )
     Dates: start: 20210901, end: 202109

REACTIONS (12)
  - Syncope [Unknown]
  - Asthenia [Unknown]
  - Dizziness [Unknown]
  - Vision blurred [Unknown]
  - Headache [Unknown]
  - Chest pain [Unknown]
  - Fatigue [Unknown]
  - Sensory disturbance [Unknown]
  - Abdominal pain upper [Unknown]
  - Musculoskeletal discomfort [Unknown]
  - Chest discomfort [Unknown]
  - Intentional product misuse [Unknown]

NARRATIVE: CASE EVENT DATE: 20210901
